FAERS Safety Report 22366118 (Version 2)
Quarter: 2023Q2

REPORT INFORMATION
  Report Type: Report from Study
  Country: US (occurrence: None)
  Receive Date: 20230525
  Receipt Date: 20230531
  Transmission Date: 20230722
  Serious: Yes (Hospitalization)
  Sender: FDA-Public Use
  Company Number: US-Eisai Medical Research-EC-2022-117102

PATIENT
  Age: 61 Year
  Sex: Female
  Weight: 149.8 kg

DRUGS (33)
  1. LENVATINIB [Suspect]
     Active Substance: LENVATINIB
     Indication: Endometrial cancer
     Dosage: STARTING DOSE AT 20 MG, FLUCTUATED DOSAGE
     Route: 048
     Dates: start: 20200629, end: 20220522
  2. LENVATINIB [Suspect]
     Active Substance: LENVATINIB
     Indication: Endometrial cancer
  3. PEMBROLIZUMAB [Suspect]
     Active Substance: PEMBROLIZUMAB
     Indication: Endometrial cancer
     Route: 041
     Dates: start: 20200629, end: 20230214
  4. PEMBROLIZUMAB [Suspect]
     Active Substance: PEMBROLIZUMAB
     Indication: Endometrial cancer
  5. COZAAR [Concomitant]
     Active Substance: LOSARTAN POTASSIUM
     Dates: start: 20200417
  6. METFORMIN [Concomitant]
     Active Substance: METFORMIN HYDROCHLORIDE
     Dates: start: 20200417
  7. TENORMIN [Concomitant]
     Active Substance: ATENOLOL
     Dates: start: 20200417
  8. ULTRAM [Concomitant]
     Active Substance: TRAMADOL HYDROCHLORIDE
     Dates: start: 20200417
  9. FLEXERIL [Concomitant]
     Active Substance: CYCLOBENZAPRINE HYDROCHLORIDE
     Dates: start: 20200417
  10. NEURONTIN [Concomitant]
     Active Substance: GABAPENTIN
     Dates: start: 20200417
  11. VITAMINS NOS [Concomitant]
     Active Substance: VITAMINS
     Dates: start: 20200424
  12. VITAMINS NOS [Concomitant]
     Active Substance: VITAMINS
     Dates: start: 20210408
  13. IBUPROFEN [Concomitant]
     Active Substance: IBUPROFEN
     Dates: start: 20200424
  14. ERGOCALCIFEROL [Concomitant]
     Active Substance: ERGOCALCIFEROL
     Dates: start: 20200424
  15. CLARITIN [Concomitant]
     Active Substance: LORATADINE
     Dates: start: 20220424
  16. GLYCOLAX [Concomitant]
     Active Substance: POLYETHYLENE GLYCOL 3350
     Dates: start: 20200501
  17. COMPAZINE [Concomitant]
     Active Substance: PROCHLORPERAZINE MALEATE
     Dates: start: 20200626
  18. TYLENOL [Concomitant]
     Active Substance: ACETAMINOPHEN
     Dates: start: 20200716
  19. PROTONIX [Concomitant]
     Active Substance: PANTOPRAZOLE SODIUM
     Dates: start: 20200720, end: 20220613
  20. VOLTAREN [Concomitant]
     Active Substance: DICLOFENAC SODIUM
     Route: 061
     Dates: start: 20201123, end: 20220609
  21. CATHFLO ACTIVASE [Concomitant]
     Active Substance: ALTEPLASE
     Route: 042
     Dates: start: 20201229
  22. LIPITOR [Concomitant]
     Active Substance: ATORVASTATIN CALCIUM
     Dates: start: 20210302
  23. DILAUDID [Concomitant]
     Active Substance: HYDROMORPHONE HYDROCHLORIDE
     Dates: start: 20210408
  24. PRILOSEC [Concomitant]
     Active Substance: OMEPRAZOLE MAGNESIUM
     Dates: start: 20210408
  25. DILTIAZEM HYDROCHLORIDE [Concomitant]
     Active Substance: DILTIAZEM HYDROCHLORIDE
     Dates: start: 20210408
  26. DENTA 5000 PLUS [Concomitant]
     Active Substance: SODIUM FLUORIDE
     Dates: start: 20210408
  27. HYDROCORTISONE ACETATE [Concomitant]
     Active Substance: HYDROCORTISONE ACETATE
     Dates: start: 20210615
  28. LEVOTHYROXINE SODIUM [Concomitant]
     Active Substance: LEVOTHYROXINE SODIUM
     Dates: start: 20210920
  29. ALBUTEROL SULFATE [Concomitant]
     Active Substance: ALBUTEROL SULFATE
     Dates: start: 20211228
  30. DELTASONE [Concomitant]
     Active Substance: PREDNISONE
     Dates: start: 20220518, end: 20220522
  31. TIMOPTIC [Concomitant]
     Active Substance: TIMOLOL MALEATE
     Dates: start: 20220420, end: 20221107
  32. LASIX [Concomitant]
     Active Substance: FUROSEMIDE
     Dates: start: 20220502
  33. KEFLEX [Concomitant]
     Active Substance: CEPHALEXIN
     Dates: start: 20220509, end: 20220609

REACTIONS (1)
  - Lymphoedema [Recovering/Resolving]

NARRATIVE: CASE EVENT DATE: 20220605
